FAERS Safety Report 4962225-6 (Version None)
Quarter: 2006Q1

REPORT INFORMATION
  Report Type: 
  Country: None (occurrence: None)
  Receive Date: 20060329
  Receipt Date: 20060322
  Transmission Date: 20060701
  Serious: Yes (Life-Threatening, Hospitalization)
  Sender: FDA-Public Use
  Company Number: TCI2006A01119

PATIENT
  Age: 65 Year
  Sex: Male

DRUGS (8)
  1. LANSOPRAZOLE [Suspect]
     Dosage: PER ORAL
     Route: 048
  2. DORNER (BERAPROST SODIUM) (TABLETS) [Suspect]
     Dosage: PER ORAL
     Route: 048
  3. TANATRIL (IMIDAPRIL HYDROCHLORIDE) (TABLETS) [Suspect]
     Dosage: PER ORAL
     Route: 048
  4. WARFARIN SODIUM [Suspect]
     Dosage: PER ORAL
     Route: 048
  5. ASPIRIN [Suspect]
     Dosage: PER ORAL
     Route: 048
  6. PANALDINE (TICLOPIDINE HYDROCHLORIDE) (PREPARATION FOR ORAL USE (NOS)) [Suspect]
     Dosage: PER ORAL
     Route: 048
  7. VASOLAN (VERAPAMIL HYDROCHLORIDE) (TABLETS) [Suspect]
     Dosage: 40 MG (40 MG, 1 IN 1 D) PER ORAL
     Route: 048
  8. CEFZON (CEFDINIR) (PREPARATION FOR ORAL USE (NOS)) [Suspect]
     Dosage: PER ORAL
     Route: 048

REACTIONS (3)
  - ERYTHEMA [None]
  - MUSCLE NECROSIS [None]
  - STEVENS-JOHNSON SYNDROME [None]
